FAERS Safety Report 6048571-6 (Version None)
Quarter: 2009Q1

REPORT INFORMATION
  Report Type: 
  Country: None (occurrence: None)
  Receive Date: 20090123
  Receipt Date: 20090112
  Transmission Date: 20090719
  Serious: Yes (Other)
  Sender: FDA-Public Use
  Company Number: US-WYE-H07635709

PATIENT
  Age: 29 Year
  Sex: Male

DRUGS (4)
  1. DIMETAPP [Suspect]
     Dosage: UNKNOWN
     Route: 048
  2. ERY-TAB [Suspect]
     Dosage: 333 MG, FREQUENCY UNKNOWN
     Route: 048
  3. BENADRYL ALLERGY AND SINUS [Suspect]
     Dosage: UNKNOWN
     Route: 048
  4. TYLENOL (CAPLET) [Suspect]
     Dosage: UNKNOWN
     Route: 048

REACTIONS (1)
  - FACIAL PALSY [None]
